FAERS Safety Report 4465483-X (Version None)
Quarter: 2004Q3

REPORT INFORMATION
  Report Type: 
  Country: None (occurrence: None)
  Receive Date: 20040930
  Receipt Date: 20040914
  Transmission Date: 20050211
  Serious: Yes (Death, Other)
  Sender: FDA-Public Use
  Company Number: 2004-DE-04838GD

PATIENT
  Sex: 0

DRUGS (2)
  1. NEVIRAPINE (NEVIRAPINE) (NR) (NEVIRAPINE) [Suspect]
     Indication: HIV INFECTION
  2. NUCLEOSIDE ANALOGUES (ANTIVIRALS FOR SYSTEMIC USE) [Suspect]
     Indication: HIV INFECTION

REACTIONS (3)
  - DRUG INEFFECTIVE [None]
  - HEPATOTOXICITY [None]
  - RASH [None]
